FAERS Safety Report 19909179 (Version 1)
Quarter: 2021Q4

REPORT INFORMATION
  Report Type: Spontaneous
  Country: US (occurrence: US)
  Receive Date: 20211001
  Receipt Date: 20211001
  Transmission Date: 20220303
  Serious: No
  Sender: FDA-Public Use
  Company Number: US-AMARIN PHARMA, INC.-2021AMR000008

PATIENT
  Age: 81 Year
  Sex: Male
  Weight: 54.48 kg

DRUGS (3)
  1. VASCEPA [Suspect]
     Active Substance: ICOSAPENT ETHYL
     Indication: Product used for unknown indication
     Route: 048
     Dates: start: 201903
  2. VASCEPA [Suspect]
     Active Substance: ICOSAPENT ETHYL
  3. VITAMINS [Concomitant]
     Active Substance: VITAMINS
     Indication: Product used for unknown indication

REACTIONS (4)
  - Retching [Unknown]
  - Vomiting [Unknown]
  - Product odour abnormal [Unknown]
  - Prescribed underdose [Unknown]
